FAERS Safety Report 11349945 (Version 1)
Quarter: 2015Q3

REPORT INFORMATION
  Report Type: Spontaneous
  Country: US (occurrence: None)
  Receive Date: 20150806
  Receipt Date: 20150806
  Transmission Date: 20151125
  Serious: Yes (Disabling)
  Sender: FDA-Public Use
  Company Number: None

PATIENT
  Age: 48 Year
  Sex: Female
  Weight: 58.51 kg

DRUGS (10)
  1. KENALOG [Suspect]
     Active Substance: TRIAMCINOLONE ACETONIDE
     Indication: TENDONITIS
     Dosage: INTO THE MUSCLE
  2. MAGNESIUM SUPPLEMENT [Concomitant]
  3. TYLENOL [Concomitant]
     Active Substance: ACETAMINOPHEN
  4. MONTELUKAST [Concomitant]
     Active Substance: MONTELUKAST SODIUM
  5. OMEPRAZOLE. [Concomitant]
     Active Substance: OMEPRAZOLE
  6. PEPTO-BISMOL [Concomitant]
     Active Substance: BISMUTH SUBSALICYLATE\CALCIUM CARBONATE
  7. BISOPROLOL [Concomitant]
     Active Substance: BISOPROLOL
  8. OMEGA-3 FISH OIL [Concomitant]
     Active Substance: FISH OIL\OMEGA-3 FATTY ACIDS
  9. IMITREX SPRAY [Concomitant]
     Active Substance: SUMATRIPTAN
  10. IBUPROFEN. [Concomitant]
     Active Substance: IBUPROFEN

REACTIONS (11)
  - Swelling face [None]
  - Abdominal distension [None]
  - Injection site bruising [None]
  - Dizziness [None]
  - Headache [None]
  - Myalgia [None]
  - Injection site pallor [None]
  - Blood pressure fluctuation [None]
  - Insomnia [None]
  - Dyspnoea [None]
  - Injection site atrophy [None]

NARRATIVE: CASE EVENT DATE: 20141008
